FAERS Safety Report 7100278-X (Version None)
Quarter: 2010Q4

REPORT INFORMATION
  Report Type: 
  Country: None (occurrence: None)
  Receive Date: 20101112
  Receipt Date: 20101109
  Transmission Date: 20110411
  Serious: Yes (Life-Threatening, Hospitalization)
  Sender: FDA-Public Use
  Company Number: PHHY2010CA64959

PATIENT
  Sex: Female

DRUGS (5)
  1. ACLASTA [Suspect]
     Indication: OSTEOPENIA
     Dosage: 5 MG / 100 ML, ONCE A YEAR
     Route: 042
     Dates: start: 20091020
  2. METOPROLOL [Concomitant]
  3. CALCIUM [Concomitant]
  4. VITAMIN D [Concomitant]
  5. ASPIRIN [Concomitant]

REACTIONS (5)
  - ABDOMINAL PAIN UPPER [None]
  - INTESTINAL STRANGULATION [None]
  - SMALL INTESTINAL RESECTION [None]
  - SMALL INTESTINE GANGRENE [None]
  - VOLVULUS OF SMALL BOWEL [None]
